FAERS Safety Report 8139016-0 (Version None)
Quarter: 2012Q1

REPORT INFORMATION
  Report Type: 
  Country: None (occurrence: None)
  Receive Date: 20120215
  Receipt Date: 20120202
  Transmission Date: 20120608
  Serious: Yes (Other)
  Sender: FDA-Public Use
  Company Number: SE-ACTELION-A-CH2010-36572

PATIENT
  Sex: Male

DRUGS (2)
  1. ZAVESCA [Suspect]
     Dosage: 100 MG, QD
     Route: 048
     Dates: start: 20100204
  2. ZAVESCA [Suspect]
     Indication: GAUCHER'S DISEASE
     Dosage: 100 MG, TID
     Route: 048
     Dates: end: 20100616

REACTIONS (8)
  - WEIGHT DECREASED [None]
  - DECREASED APPETITE [None]
  - ASPERGILLOSIS [None]
  - NIGHT SWEATS [None]
  - DIARRHOEA [None]
  - TREMOR [None]
  - MYCOBACTERIAL INFECTION [None]
  - FUNGAL INFECTION [None]
